FAERS Safety Report 10596382 (Version 1)
Quarter: 2014Q4

REPORT INFORMATION
  Report Type: Spontaneous
  Country: IT (occurrence: IT)
  Receive Date: 20141120
  Receipt Date: 20141120
  Transmission Date: 20150529
  Serious: Yes (Hospitalization)
  Sender: FDA-Public Use
  Company Number: IT-MYLANLABS-2014M1011210

PATIENT

DRUGS (2)
  1. LAMIVUDINE/ZIDOVUDINE [Suspect]
     Active Substance: LAMIVUDINE\ZIDOVUDINE
     Indication: HIV INFECTION
     Dosage: LAMIVUDINE 150MG/ZIDOVUDINE 300MG TWICE DAILY
     Route: 048
     Dates: start: 200502
  2. EFAVIRENZ [Concomitant]
     Active Substance: EFAVIRENZ
     Indication: HIV INFECTION
     Dosage: 600 MG, QD
     Route: 048
     Dates: start: 200502

REACTIONS (5)
  - Congestive cardiomyopathy [Recovered/Resolved]
  - Cardiac failure [Recovered/Resolved]
  - Mitral valve incompetence [None]
  - Bundle branch block left [None]
  - Ventricular extrasystoles [None]

NARRATIVE: CASE EVENT DATE: 200905
